FAERS Safety Report 9288443 (Version 2)
Quarter: 2013Q2

REPORT INFORMATION
  Report Type: Spontaneous
  Country: GB (occurrence: GB)
  Receive Date: 20130514
  Receipt Date: 20130626
  Transmission Date: 20140414
  Serious: Yes (Other)
  Sender: FDA-Public Use
  Company Number: GB-PFIZER INC-2013145046

PATIENT
  Age: 77 Year
  Sex: Female

DRUGS (1)
  1. AMLODIPINE BESILATE [Suspect]
     Dosage: 10 MG, UNK
     Route: 048
     Dates: start: 2012

REACTIONS (3)
  - Choking [Unknown]
  - Loss of consciousness [Unknown]
  - Dyspnoea [Unknown]
